FAERS Safety Report 5115657-X (Version None)
Quarter: 2006Q3

REPORT INFORMATION
  Report Type: 
  Country: None (occurrence: None)
  Receive Date: 20060927
  Receipt Date: 20060919
  Transmission Date: 20061208
  Serious: Yes (Other)
  Sender: FDA-Public Use
  Company Number: US-AVENTIS-200619872GDDC

PATIENT
  Age: 64 Year
  Sex: Male

DRUGS (11)
  1. DOCETAXEL [Suspect]
     Indication: SQUAMOUS CELL CARCINOMA
     Route: 042
     Dates: start: 20060809, end: 20060809
  2. CISPLATIN [Suspect]
     Indication: SQUAMOUS CELL CARCINOMA
     Route: 042
     Dates: start: 20060809, end: 20060809
  3. TARCEVA [Suspect]
     Indication: SQUAMOUS CELL CARCINOMA
     Route: 048
     Dates: start: 20060425
  4. LOVASTATIN [Concomitant]
     Dosage: DOSE: 40 MG (HALF) AT BEDTIME
     Route: 048
  5. NYSTATIN [Concomitant]
     Dosage: DOSE: 100,000
     Route: 048
  6. LOSARTAN POSTASSIUM [Concomitant]
  7. HYDROCHLOROTHIAZDE TAB [Concomitant]
     Dosage: DOSE: 25 MG (HALF)
  8. SODIUM CHLORIDE [Concomitant]
  9. PRILOSEC [Concomitant]
  10. LEVOTHYROXINE SODIUM [Concomitant]
  11. MAGNESIUM OXIDE [Concomitant]

REACTIONS (6)
  - ASTHENIA [None]
  - BLOOD CHLORIDE DECREASED [None]
  - BLOOD UREA DECREASED [None]
  - HYPOMAGNESAEMIA [None]
  - HYPONATRAEMIA [None]
  - RED BLOOD CELL COUNT DECREASED [None]
